FAERS Safety Report 4829982-0 (Version None)
Quarter: 2005Q4

REPORT INFORMATION
  Report Type: 
  Country: None (occurrence: None)
  Receive Date: 20051115
  Receipt Date: 20051115
  Transmission Date: 20060501
  Serious: Yes (Life-Threatening, Hospitalization)
  Sender: FDA-Public Use
  Company Number: None

PATIENT
  Age: 49 Year
  Sex: Female
  Weight: 73.0291 kg

DRUGS (6)
  1. CARBAMAZEPINE [Suspect]
     Indication: MAJOR DEPRESSION
     Dosage: 3 TABLETS AT BEDTIME
     Dates: start: 20050629, end: 20050713
  2. CARBAMAZEPINE [Suspect]
     Indication: POST-TRAUMATIC STRESS DISORDER
     Dosage: 3 TABLETS AT BEDTIME
     Dates: start: 20050629, end: 20050713
  3. CLONAZEPAM [Concomitant]
  4. TRAZODONE HCL [Concomitant]
  5. VENLAFAXINE HCL [Concomitant]
  6. ZIPRASIDONE [Concomitant]

REACTIONS (4)
  - BONE MARROW FAILURE [None]
  - EPISTAXIS [None]
  - PETECHIAE [None]
  - THROMBOCYTOPENIA [None]
